FAERS Safety Report 10242453 (Version 1)
Quarter: 2014Q2

REPORT INFORMATION
  Report Type: Spontaneous
  Country: DE (occurrence: DE)
  Receive Date: 20140617
  Receipt Date: 20140617
  Transmission Date: 20141212
  Serious: Yes (Other)
  Sender: FDA-Public Use
  Company Number: DE-TEVA-486861GER

PATIENT
  Age: 83 Year
  Sex: Female
  Weight: 40 kg

DRUGS (3)
  1. METAMIZOL [Suspect]
     Indication: PAIN
     Dosage: 2000 MILLIGRAM DAILY;
     Route: 048
     Dates: start: 20140425, end: 20140512
  2. METHOTREXAT [Suspect]
     Indication: POLYARTHRITIS
     Route: 048
     Dates: end: 20140508
  3. ARCOXIA [Suspect]
     Indication: POLYARTHRITIS
     Route: 048
     Dates: start: 20140428, end: 20140512

REACTIONS (4)
  - Agranulocytosis [Unknown]
  - Pancytopenia [Unknown]
  - Stomatitis [Unknown]
  - Oral candidiasis [Unknown]
